FAERS Safety Report 17252147 (Version 10)
Quarter: 2020Q4

REPORT INFORMATION
  Report Type: Spontaneous
  Country: US (occurrence: US)
  Receive Date: 20200109
  Receipt Date: 20201218
  Transmission Date: 20210113
  Serious: Yes (Other)
  Sender: FDA-Public Use
  Company Number: US-PFIZER INC-2019542445

PATIENT
  Age: 76 Year
  Sex: Female
  Weight: 52 kg

DRUGS (3)
  1. IBRANCE [Suspect]
     Active Substance: PALBOCICLIB
     Indication: BREAST CANCER METASTATIC
     Dosage: 100 MG, CYCLIC (DAILY FOR 21 DAYS)
     Route: 048
     Dates: start: 20200131, end: 2020
  2. IBRANCE [Suspect]
     Active Substance: PALBOCICLIB
     Dosage: 100 MG, CYCLIC (TAKE ONCE DAILY FOR 21 DAYS AND OFF SEVEN)
     Route: 048
     Dates: start: 2020, end: 20201027
  3. IBRANCE [Suspect]
     Active Substance: PALBOCICLIB
     Dosage: 100 MG
     Route: 048

REACTIONS (9)
  - Venous haemorrhage [Unknown]
  - Renal impairment [Unknown]
  - Dysstasia [Unknown]
  - Neoplasm progression [Unknown]
  - Fatigue [Unknown]
  - Failure to thrive [Not Recovered/Not Resolved]
  - Staphylococcal infection [Recovered/Resolved]
  - Dysphagia [Unknown]
  - Staphylococcal osteomyelitis [Recovering/Resolving]

NARRATIVE: CASE EVENT DATE: 2020
